FAERS Safety Report 16128121 (Version 1)
Quarter: 2019Q1

REPORT INFORMATION
  Report Type: Report from Study
  Country: JP (occurrence: JP)
  Receive Date: 20190328
  Receipt Date: 20190328
  Transmission Date: 20190418
  Serious: Yes (Death)
  Sender: FDA-Public Use
  Company Number: JP-PFIZER INC-2019129232

PATIENT

DRUGS (5)
  1. METHOTREXATE. [Concomitant]
     Active Substance: METHOTREXATE
     Indication: OSTEOSARCOMA
     Dosage: 8-12G/M^2, CYCLIC (HIGH DOSE) (8 -12G/ M^2)
  2. DOXORUBICIN HCL [Suspect]
     Active Substance: DOXORUBICIN HYDROCHLORIDE
     Indication: OSTEOSARCOMA
     Dosage: 30 MG/M^2, CYCLIC (X 2 OR 3)
  3. IFOSFAMIDE. [Concomitant]
     Active Substance: IFOSFAMIDE
     Indication: OSTEOSARCOMA
     Dosage: 16 G/M^2 /7DAYS
  4. CISPLATIN. [Concomitant]
     Active Substance: CISPLATIN
     Indication: OSTEOSARCOMA
     Dosage: 120 MG/M^2, CYCLIC
  5. METHOTREXATE. [Concomitant]
     Active Substance: METHOTREXATE
     Dosage: 12 G/M2, CYCLIC

REACTIONS (1)
  - Cardiotoxicity [Fatal]
